FAERS Safety Report 7021326-1 (Version None)
Quarter: 2010Q3

REPORT INFORMATION
  Report Type: 
  Country: None (occurrence: None)
  Receive Date: 20100929
  Receipt Date: 20100920
  Transmission Date: 20110219
  Serious: No
  Sender: FDA-Public Use
  Company Number: US-PFIZER INC-2010119166

PATIENT
  Sex: Male
  Weight: 54.422 kg

DRUGS (2)
  1. ZYVOX [Suspect]
     Indication: INFECTION
     Dosage: 600 MG
     Dates: start: 20100801
  2. PSEUDOEPHEDRINE [Interacting]
     Indication: NASAL CONGESTION
     Dosage: UNK
     Dates: start: 20100828, end: 20100828

REACTIONS (4)
  - DRUG INTERACTION [None]
  - HYPERSOMNIA [None]
  - RHINORRHOEA [None]
  - SNEEZING [None]
